FAERS Safety Report 18342090 (Version 40)
Quarter: 2023Q1

REPORT INFORMATION
  Report Type: Report from Study
  Country: CN (occurrence: None)
  Receive Date: 20201005
  Receipt Date: 20230123
  Transmission Date: 20230417
  Serious: Yes (Death, Life-Threatening, Hospitalization)
  Sender: FDA-Public Use
  Company Number: CN-ROCHE-2687711

PATIENT
  Age: 66 Year
  Sex: Male
  Weight: 74 kg

DRUGS (82)
  1. PLACEBO [Suspect]
     Active Substance: UNSPECIFIED INGREDIENT
     Indication: Non-small cell lung cancer
     Dosage: ON DAY 1 OF EACH 21-DAY CYCLE (AS PER PROTOCOL)?MOST RECENT DOSE OF BLINDED ATEZOLIZUMAB PRIOR TO AE
     Route: 041
     Dates: start: 20200729
  2. CARBOPLATIN [Suspect]
     Active Substance: CARBOPLATIN
     Indication: Non-small cell lung cancer
     Dosage: IV INFUSION TO ACHIEVE AN INITIAL TARGET AUC OF 6 MG/ML/MIN (AS PER PROTOCOL)?MOST RECENT DOSE 500
     Route: 042
     Dates: start: 20200729
  3. CARBOPLATIN [Suspect]
     Active Substance: CARBOPLATIN
     Indication: Non-small cell lung cancer
  4. PACLITAXEL [Suspect]
     Active Substance: PACLITAXEL
     Indication: Non-small cell lung cancer
     Dosage: IV INFUSION AT A DOSE OF 175 MG/M2 (AS PER PROTOCOL) ?MOST RECENT DOSE 250 MG OF PACLITAXEL PRIOR TO
     Route: 042
     Dates: start: 20200729
  5. PACLITAXEL [Suspect]
     Active Substance: PACLITAXEL
     Indication: Non-small cell lung cancer
  6. BEVACIZUMAB [Suspect]
     Active Substance: BEVACIZUMAB
     Indication: Non-small cell lung cancer
     Dosage: IV INFUSION AT A DOSE OF 15 MG/KG ON DAY 1 OF EACH 21-DAY CYCLE (AS PER PROTOCOL)?MOST RECENT DOSE 1
     Route: 042
     Dates: start: 20200729
  7. DEXAMETHASONE [Concomitant]
     Active Substance: DEXAMETHASONE
     Dosage: SUBSEQUENT DOSE ON 29-JUL-2020, 18-AUG-2020, 19-AUG-2020, 16-SEP-2020, 17-SEP-2020.
     Route: 048
     Dates: start: 20200728, end: 20200729
  8. DEXAMETHASONE [Concomitant]
     Active Substance: DEXAMETHASONE
     Route: 048
     Dates: start: 20200916, end: 20200916
  9. DEXAMETHASONE [Concomitant]
     Active Substance: DEXAMETHASONE
     Route: 048
     Dates: start: 20200729, end: 20200729
  10. DEXAMETHASONE [Concomitant]
     Active Substance: DEXAMETHASONE
     Route: 048
     Dates: start: 20200818, end: 20200818
  11. DEXAMETHASONE [Concomitant]
     Active Substance: DEXAMETHASONE
     Route: 048
     Dates: start: 20200916, end: 20200916
  12. DEXAMETHASONE [Concomitant]
     Active Substance: DEXAMETHASONE
     Route: 048
     Dates: start: 20200917, end: 20200917
  13. DEXAMETHASONE [Concomitant]
     Active Substance: DEXAMETHASONE
     Route: 048
     Dates: start: 20201102, end: 20201103
  14. DEXAMETHASONE [Concomitant]
     Active Substance: DEXAMETHASONE
     Route: 048
     Dates: start: 20200819, end: 20200819
  15. DIPHENHYDRAMINE [Concomitant]
     Active Substance: DIPHENHYDRAMINE
     Dates: start: 20200729, end: 20200729
  16. DIPHENHYDRAMINE [Concomitant]
     Active Substance: DIPHENHYDRAMINE
     Dates: start: 20200819, end: 20200819
  17. DIPHENHYDRAMINE [Concomitant]
     Active Substance: DIPHENHYDRAMINE
     Dates: start: 20200917, end: 20200917
  18. CIMETIDINE [Concomitant]
     Active Substance: CIMETIDINE
     Dates: start: 20200729, end: 20200729
  19. CIMETIDINE [Concomitant]
     Active Substance: CIMETIDINE
     Dates: start: 20200819, end: 20200819
  20. CIMETIDINE [Concomitant]
     Active Substance: CIMETIDINE
     Dates: start: 20200917, end: 20200917
  21. PALONOSETRON [Concomitant]
     Active Substance: PALONOSETRON
     Indication: Prophylaxis
     Dates: start: 20200729, end: 20200729
  22. PALONOSETRON [Concomitant]
     Active Substance: PALONOSETRON
     Dates: start: 20200819, end: 20200819
  23. PALONOSETRON [Concomitant]
     Active Substance: PALONOSETRON
     Dates: start: 20200917, end: 20200917
  24. PANTOPRAZOLE [Concomitant]
     Active Substance: PANTOPRAZOLE
     Dates: start: 20200729, end: 20200729
  25. PANTOPRAZOLE [Concomitant]
     Active Substance: PANTOPRAZOLE
     Dates: start: 20201103, end: 20201103
  26. ZOLEDRONIC ACID [Concomitant]
     Active Substance: ZOLEDRONIC ACID
     Dosage: THIS ADMINISTRATION WAS FOR A HISTORY OF BONE METASTASES AND WAS NOT ASSOCIATED WITH AE
     Dates: start: 20200729, end: 20200729
  27. ZOLEDRONIC ACID [Concomitant]
     Active Substance: ZOLEDRONIC ACID
     Dosage: TREATMENT OF BONE METASTASIS
     Dates: start: 20200819, end: 20200819
  28. ZOLEDRONIC ACID [Concomitant]
     Active Substance: ZOLEDRONIC ACID
     Dosage: TREATMENT OF BONE METASTASIS
     Dates: start: 20200917, end: 20200917
  29. IBUPROFEN [Concomitant]
     Active Substance: IBUPROFEN
     Indication: Pyrexia
     Dates: start: 20200730, end: 20200730
  30. CEFIXIME [Concomitant]
     Active Substance: CEFIXIME
     Dates: start: 20200806, end: 20200815
  31. OPRELVEKIN [Concomitant]
     Active Substance: OPRELVEKIN
     Indication: Platelet count decreased
     Dates: start: 20200802, end: 20200802
  32. OPRELVEKIN [Concomitant]
     Active Substance: OPRELVEKIN
     Indication: Platelet count increased
     Dates: start: 20200806, end: 20200807
  33. OPRELVEKIN [Concomitant]
     Active Substance: OPRELVEKIN
     Dates: start: 20200812, end: 20200812
  34. OPRELVEKIN [Concomitant]
     Active Substance: OPRELVEKIN
     Dates: start: 20200828, end: 20200828
  35. OPRELVEKIN [Concomitant]
     Active Substance: OPRELVEKIN
     Dates: start: 20200904, end: 20200915
  36. OPRELVEKIN [Concomitant]
     Active Substance: OPRELVEKIN
     Dates: start: 20200919, end: 20200919
  37. OPRELVEKIN [Concomitant]
     Active Substance: OPRELVEKIN
     Dates: start: 20200921, end: 20200921
  38. OPRELVEKIN [Concomitant]
     Active Substance: OPRELVEKIN
     Dates: start: 20200923, end: 20200923
  39. OPRELVEKIN [Concomitant]
     Active Substance: OPRELVEKIN
     Dates: start: 20200925, end: 20200925
  40. OPRELVEKIN [Concomitant]
     Active Substance: OPRELVEKIN
     Dates: start: 20200927, end: 20200927
  41. OPRELVEKIN [Concomitant]
     Active Substance: OPRELVEKIN
     Dates: start: 20200929, end: 20200929
  42. OPRELVEKIN [Concomitant]
     Active Substance: OPRELVEKIN
     Dates: start: 20201002, end: 20201013
  43. OPRELVEKIN [Concomitant]
     Active Substance: OPRELVEKIN
     Dates: start: 20200904, end: 20200915
  44. OPRELVEKIN [Concomitant]
     Active Substance: OPRELVEKIN
     Dates: start: 20201112, end: 20201123
  45. PANTOPRAZOLE SODIUM [Concomitant]
     Active Substance: PANTOPRAZOLE SODIUM
     Dates: start: 20200819, end: 20200819
  46. PANTOPRAZOLE SODIUM [Concomitant]
     Active Substance: PANTOPRAZOLE SODIUM
     Dates: start: 20200917, end: 20200917
  47. FOLIC ACID [Concomitant]
     Active Substance: FOLIC ACID
     Dates: start: 20201019
  48. ACETYLCYSTEINE [Concomitant]
     Active Substance: ACETYLCYSTEINE
     Indication: Cough
     Dates: start: 20201101, end: 20201102
  49. ACETYLCYSTEINE [Concomitant]
     Active Substance: ACETYLCYSTEINE
     Dates: start: 20201109, end: 20201112
  50. FUROSEMIDE [Concomitant]
     Active Substance: FUROSEMIDE
     Dates: start: 20201208, end: 20201209
  51. DOPAMINE HYDROCHLORIDE [Concomitant]
     Active Substance: DOPAMINE HYDROCHLORIDE
     Indication: Blood pressure increased
     Dates: start: 20201109, end: 20201109
  52. DOXOFYLLINE [Concomitant]
     Active Substance: DOXOFYLLINE
     Dates: start: 20201109, end: 20201123
  53. NOREPINEPHRINE BITARTRATE [Concomitant]
     Active Substance: NOREPINEPHRINE BITARTRATE
     Dates: start: 20201109, end: 20201109
  54. ALBUMIN PREPARED FROM HUMAN PLASMA [Concomitant]
     Dates: start: 20201109, end: 20201111
  55. ALBUMIN PREPARED FROM HUMAN PLASMA [Concomitant]
     Dates: start: 20201015, end: 20201017
  56. AMBROXOL HYDROCHLORIDE [Concomitant]
     Active Substance: AMBROXOL HYDROCHLORIDE
     Dates: start: 20201109, end: 20201112
  57. BUDESONIDE [Concomitant]
     Active Substance: BUDESONIDE
     Dates: start: 20201109, end: 20201119
  58. GENTAMICIN SULFATE [Concomitant]
     Active Substance: GENTAMICIN SULFATE
     Dates: start: 20210104, end: 20210106
  59. LEVOFLOXACIN LACTATE [Concomitant]
     Active Substance: LEVOFLOXACIN LACTATE
     Dates: start: 20210104, end: 20210110
  60. SUFENTANIL CITRATE [Concomitant]
     Active Substance: SUFENTANIL CITRATE
     Dates: start: 20201110, end: 20201111
  61. MORPHINE SULFATE [Concomitant]
     Active Substance: MORPHINE SULFATE
     Indication: Back pain
     Dates: start: 20210101, end: 20210101
  62. MORPHINE SULFATE [Concomitant]
     Active Substance: MORPHINE SULFATE
     Dates: start: 20210127, end: 20210206
  63. RED CELL STORAGING [Concomitant]
     Indication: Myelosuppression
     Dates: start: 20210103, end: 20210103
  64. RED CELL STORAGING [Concomitant]
     Dates: start: 20210120, end: 20210120
  65. RED CELL STORAGING [Concomitant]
     Dates: start: 20210101, end: 20210101
  66. VITAMIN C [Concomitant]
     Active Substance: ASCORBIC ACID
     Dates: start: 20201109, end: 20201109
  67. VITAMIN C [Concomitant]
     Active Substance: ASCORBIC ACID
     Dates: start: 20200929, end: 20200929
  68. VITAMIN C [Concomitant]
     Active Substance: ASCORBIC ACID
     Dates: start: 20201014, end: 20201018
  69. POTASSIUM CHLORIDE [Concomitant]
     Active Substance: POTASSIUM CHLORIDE
     Dates: start: 20201109, end: 20201109
  70. POTASSIUM CHLORIDE [Concomitant]
     Active Substance: POTASSIUM CHLORIDE
     Dates: start: 20200929, end: 20200930
  71. POTASSIUM CHLORIDE [Concomitant]
     Active Substance: POTASSIUM CHLORIDE
     Dates: start: 20201014, end: 20201018
  72. POTASSIUM CHLORIDE [Concomitant]
     Active Substance: POTASSIUM CHLORIDE
     Dates: start: 20201028, end: 20201102
  73. VITAMIN B6 [Concomitant]
     Active Substance: PYRIDOXINE HYDROCHLORIDE
     Dates: start: 20201109, end: 20201111
  74. VITAMIN B6 [Concomitant]
     Active Substance: PYRIDOXINE HYDROCHLORIDE
     Dates: start: 20201014, end: 20201018
  75. VITAMIN B6 [Concomitant]
     Active Substance: PYRIDOXINE HYDROCHLORIDE
     Dates: start: 20201028, end: 20201102
  76. CAFFEIC ACID [Concomitant]
     Active Substance: CAFFEIC ACID
     Indication: White blood cell count decreased
     Dates: start: 20201028, end: 20201102
  77. TRAMADOL HYDROCHLORIDE [Concomitant]
     Active Substance: TRAMADOL HYDROCHLORIDE
     Indication: Back pain
     Dates: start: 20201231, end: 20201231
  78. TRAMADOL HYDROCHLORIDE [Concomitant]
     Active Substance: TRAMADOL HYDROCHLORIDE
     Dates: start: 20210102, end: 20210102
  79. TRAMADOL HYDROCHLORIDE [Concomitant]
     Active Substance: TRAMADOL HYDROCHLORIDE
     Dates: start: 20210104, end: 20210104
  80. TRAMADOL HYDROCHLORIDE [Concomitant]
     Active Substance: TRAMADOL HYDROCHLORIDE
     Dates: start: 20210113, end: 20210117
  81. TRAMADOL HYDROCHLORIDE [Concomitant]
     Active Substance: TRAMADOL HYDROCHLORIDE
     Dates: start: 20210125, end: 20210206
  82. OXYCODONE AND ACETAMINOPHEN [Concomitant]
     Active Substance: ACETAMINOPHEN\OXYCODONE HYDROCHLORIDE
     Indication: Back pain
     Dates: start: 20210104, end: 20210203

REACTIONS (4)
  - Pneumonia [Fatal]
  - Septic shock [Recovered/Resolved with Sequelae]
  - Renal impairment [Recovered/Resolved]
  - Anaemia [Recovered/Resolved]

NARRATIVE: CASE EVENT DATE: 20200824
